FAERS Safety Report 8624824-X (Version None)
Quarter: 2012Q3

REPORT INFORMATION
  Report Type: 
  Country: None (occurrence: None)
  Receive Date: 20120827
  Receipt Date: 20110118
  Transmission Date: 20120928
  Serious: Yes (Other)
  Sender: FDA-Public Use
  Company Number: FR-AMGEN-FRACT2010001498

PATIENT
  Age: 81 Year
  Sex: Male

DRUGS (9)
  1. VITAMIN D [Concomitant]
     Dosage: 100000 UNIT, QMO
     Route: 048
  2. LANTUS [Concomitant]
     Dosage: 30 UNK, QD
     Route: 058
     Dates: start: 20100301
  3. FOLIC ACID [Concomitant]
     Dosage: 10 MG, QD
     Route: 048
     Dates: start: 20100401, end: 20101016
  4. REPAGLINIDE [Concomitant]
     Dosage: 2 MG, TID
     Route: 048
     Dates: start: 20100929
  5. NIFUROXAZIDE [Concomitant]
     Dosage: 200 MG, UNK
     Route: 048
     Dates: start: 20100223, end: 20100916
  6. ROMIPLOSTIM [Suspect]
     Indication: MYELODYSPLASTIC SYNDROME
     Dosage: UNK UNK, QWK
     Route: 058
     Dates: start: 20100223, end: 20101019
  7. NEORECORMON [Concomitant]
     Dosage: 60000 UNIT, QWK
     Route: 058
     Dates: start: 20100921
  8. LEVOTHYROXINE SODIUM [Concomitant]
     Dosage: UNK UNK, QD
     Route: 048
     Dates: start: 20091201
  9. CALCIDOSE                          /00108001/ [Concomitant]
     Dosage: 600 MG, QD
     Route: 048
     Dates: start: 20100324, end: 20101016

REACTIONS (1)
  - BLAST CELL COUNT INCREASED [None]
